FAERS Safety Report 6207758-X (Version None)
Quarter: 2009Q2

REPORT INFORMATION
  Report Type: 
  Country: None (occurrence: None)
  Receive Date: 20090528
  Receipt Date: 20090522
  Transmission Date: 20091009
  Serious: Yes (Other)
  Sender: FDA-Public Use
  Company Number: US-AMGEN-QUU348278

PATIENT
  Sex: Male

DRUGS (1)
  1. ENBREL [Suspect]
     Indication: RHEUMATOID ARTHRITIS
     Route: 058
     Dates: start: 20080306

REACTIONS (4)
  - CALCULUS BLADDER [None]
  - CORONARY ARTERY OCCLUSION [None]
  - DYSPNOEA EXERTIONAL [None]
  - HAEMORRHAGE SUBEPIDERMAL [None]
